FAERS Safety Report 5813995-6 (Version None)
Quarter: 2008Q3

REPORT INFORMATION
  Report Type: 
  Country: None (occurrence: None)
  Receive Date: 20080717
  Receipt Date: 20080707
  Transmission Date: 20090109
  Serious: Yes (Hospitalization)
  Sender: FDA-Public Use
  Company Number: AU-PFIZER INC-2008028610

PATIENT
  Age: 41 Year
  Sex: Female

DRUGS (4)
  1. CHANTIX [Suspect]
     Route: 048
     Dates: start: 20080311, end: 20080311
  2. ANTIHYPERTENSIVES [Concomitant]
  3. NEXIUM [Concomitant]
  4. TRANDOLAPRIL [Concomitant]
     Dosage: DAILY DOSE:4MG
     Route: 048

REACTIONS (5)
  - DIARRHOEA [None]
  - DIZZINESS [None]
  - NAUSEA [None]
  - PARAESTHESIA [None]
  - TACHYCARDIA [None]
